FAERS Safety Report 8848943 (Version 3)
Quarter: 2012Q4

REPORT INFORMATION
  Report Type: 
  Country: CO (occurrence: CO)
  Receive Date: 20121019
  Receipt Date: 20121030
  Transmission Date: 20130627
  Serious: Yes (Other)
  Sender: FDA-Public Use
  Company Number: CO-AMGEN-COLSP2012066294

PATIENT
  Age: 35 Year
  Sex: Male

DRUGS (1)
  1. ENBREL [Suspect]
     Indication: PRODUCT USED FOR UNKNOWN INDICATION
     Dosage: 50 mg, weekly
     Route: 058
     Dates: start: 201010

REACTIONS (2)
  - Corneal disorder [Recovering/Resolving]
  - Eye operation complication [Recovering/Resolving]
